FAERS Safety Report 6806648-9 (Version None)
Quarter: 2010Q2

REPORT INFORMATION
  Report Type: 
  Country: None (occurrence: None)
  Receive Date: 20100629
  Receipt Date: 20080421
  Transmission Date: 20101027
  Serious: No
  Sender: FDA-Public Use
  Company Number: US-PFIZER INC-2008034706

PATIENT

DRUGS (3)
  1. METHYLPREDNISOLONE 16MG TAB [Suspect]
     Indication: HYPERSENSITIVITY
     Route: 048
  2. NIASPAN [Interacting]
     Indication: BLOOD CHOLESTEROL INCREASED
     Dates: start: 20070701, end: 20070904
  3. EZETIMIBE [Concomitant]

REACTIONS (2)
  - DRUG INTERACTION [None]
  - FLUSHING [None]
